FAERS Safety Report 7236095-X (Version None)
Quarter: 2011Q1

REPORT INFORMATION
  Report Type: 
  Country: None (occurrence: None)
  Receive Date: 20110110
  Receipt Date: 20101229
  Transmission Date: 20110831
  Serious: Yes (Hospitalization)
  Sender: FDA-Public Use
  Company Number: 023068

PATIENT
  Sex: Female

DRUGS (1)
  1. KEPPRA [Suspect]
     Indication: CONVULSION
     Dosage: (500 MG, 1000 MG AN AND 1500 MG HS ORAL)
     Route: 048

REACTIONS (1)
  - CEREBROVASCULAR ACCIDENT [None]
